FAERS Safety Report 6653528-8 (Version None)
Quarter: 2010Q1

REPORT INFORMATION
  Report Type: 
  Country: None (occurrence: None)
  Receive Date: 20100326
  Receipt Date: 20100316
  Transmission Date: 20100710
  Serious: Yes (Other)
  Sender: FDA-Public Use
  Company Number: GB-AMGEN-US401596

PATIENT
  Age: 46 Year
  Sex: Male
  Weight: 98 kg

DRUGS (2)
  1. ENBREL [Suspect]
     Indication: ANKYLOSING SPONDYLITIS
     Dosage: 50MG (FREQUENCY UNKNOWN)
     Route: 058
     Dates: start: 20051116
  2. LISINOPRIL [Concomitant]
     Indication: HYPERTENSION
     Dosage: 2.5MG (FREQUENCY UNKNOWN)
     Route: 048
     Dates: start: 20100206

REACTIONS (2)
  - PLEURAL EFFUSION [None]
  - THORACIC CAVITY DRAINAGE [None]
